FAERS Safety Report 10233598 (Version 1)
Quarter: 2014Q2

REPORT INFORMATION
  Report Type: Report from Study
  Country: US (occurrence: US)
  Receive Date: 20140612
  Receipt Date: 20140612
  Transmission Date: 20141212
  Serious: Yes (Hospitalization, Other)
  Sender: FDA-Public Use
  Company Number: US-PFIZER INC-2014156000

PATIENT
  Age: 61 Year
  Sex: Male

DRUGS (53)
  1. METHYLPREDNISOLONE SODIUM SUCCINATE [Suspect]
     Dosage: 2 MG/KG, UNK
     Route: 042
     Dates: start: 201111, end: 201111
  2. METHYLPREDNISOLONE SODIUM SUCCINATE [Suspect]
     Dosage: 380 MG, SINGLE
     Route: 042
     Dates: start: 20111118, end: 20111118
  3. METHYLPREDNISOLONE SODIUM SUCCINATE [Suspect]
     Dosage: 250 MG, 2X/DAY
     Route: 042
     Dates: start: 20111119, end: 20111120
  4. METHYLPREDNISOLONE SODIUM SUCCINATE [Suspect]
     Dosage: 250MGX1 AND 750MG X1
     Route: 042
     Dates: start: 20111121, end: 20111121
  5. METHYLPREDNISOLONE SODIUM SUCCINATE [Suspect]
     Dosage: 500 MG, 2X/DAY
     Route: 042
     Dates: start: 20111122, end: 20111122
  6. METHYLPREDNISOLONE SODIUM SUCCINATE [Suspect]
     Dosage: 500 MG, 1X/DAY
     Route: 042
     Dates: start: 201111, end: 201111
  7. PREDNISONE [Suspect]
     Dosage: 80 MG, 1X/DAY FOR 3 DAYS
     Route: 048
     Dates: start: 201111, end: 201111
  8. PREDNISONE [Suspect]
     Dosage: 80 MG, 1X/DAY FOR 7 DAYS
     Route: 048
     Dates: start: 201111, end: 201111
  9. PREDNISONE [Suspect]
     Dosage: 120 MG, 1X/DAY
     Route: 048
     Dates: start: 20111117, end: 20111117
  10. PREDNISONE [Suspect]
     Dosage: 120 MG, 1X/DAY
     Route: 048
  11. PREDNISONE [Suspect]
     Dosage: 120 MG, 1X/DAY
     Route: 048
  12. BLINDED THERAPY [Suspect]
     Indication: PROSTATE CANCER
     Dosage: UNK
     Route: 042
     Dates: start: 20110820, end: 201111
  13. COUMADINE [Concomitant]
  14. CORTISONE [Concomitant]
     Dosage: UNK
     Dates: start: 20110920
  15. COLACE [Concomitant]
     Dosage: UNK
     Dates: start: 20110921
  16. ZOLPIDEM TARTRATE [Concomitant]
     Dosage: UNK
     Dates: start: 2007
  17. AMITRIPTYLINE [Concomitant]
     Dosage: UNK
     Dates: start: 2011, end: 20111101
  18. BENADRYL [Concomitant]
     Dosage: UNK
     Dates: start: 20111012, end: 20111101
  19. ATARAX [Concomitant]
     Dosage: UNK
     Dates: start: 20111101
  20. EFFEXOR [Concomitant]
     Dosage: UNK
     Dates: start: 20111101
  21. HYDROCODONE+ACETAMINOPHEN [Concomitant]
     Dosage: UNK
     Dates: start: 20111101
  22. SOMA [Concomitant]
     Dosage: UNK
     Dates: start: 20111101
  23. LUPRON [Concomitant]
     Dosage: UNK
     Dates: start: 20130416
  24. PRAVASTATIN SODIUM [Concomitant]
     Dosage: UNK
     Dates: start: 1991
  25. VENLAFAXINE HCL PHYS TOTAL CARE [Concomitant]
     Dosage: UNK
     Dates: start: 2004, end: 20111101
  26. HYDROCHLOROTHIAZIDE [Concomitant]
     Dosage: UNK
     Dates: start: 1986
  27. ENALAPRIL [Concomitant]
     Dosage: UNK
     Dates: start: 1991
  28. ATENOLOL [Concomitant]
     Dosage: UNK
     Dates: start: 1991
  29. OMEPRAZOLE [Concomitant]
     Dosage: UNK
     Dates: start: 2009
  30. OMEGA 3 FISH OIL [Concomitant]
     Dosage: UNK
     Dates: start: 2009
  31. CALCIUM [Concomitant]
     Dosage: UNK
     Dates: start: 2009
  32. DIFLUCAN [Concomitant]
  33. PROTONIX [Concomitant]
  34. CRESTOR [Concomitant]
     Dosage: UNK
     Dates: start: 20120114
  35. BACTRIM DS [Concomitant]
     Dosage: UNK
     Dates: start: 20120114
  36. CELLCEPT [Concomitant]
  37. MAGNESIUM OXIDE [Concomitant]
  38. CALCIUM CARBONATE [Concomitant]
     Dosage: UNK
     Dates: start: 20120114
  39. LANTUS [Concomitant]
     Dosage: UNK
     Dates: start: 20120114
  40. INSULIN ASPART [Concomitant]
     Dosage: UNK
     Dates: start: 20120114
  41. VITAMIN D3 [Concomitant]
     Dosage: UNK
     Dates: start: 20120114
  42. SENNOSIDE A+B [Concomitant]
     Dosage: UNK
     Dates: start: 20120105, end: 20120114
  43. MAGNESIUM SULFATE [Concomitant]
     Dosage: UNK
     Dates: start: 20120106
  44. METOPROLOL [Concomitant]
     Dosage: UNK
     Dates: start: 20120108
  45. MYCOPHENOLATE SODIUM [Concomitant]
     Dosage: UNK
     Dates: start: 20120105
  46. POTASSIUM CHLORIDE [Concomitant]
     Dosage: UNK
     Dates: start: 20120110
  47. POTASSIUM PHOSPHATE [Concomitant]
     Dosage: UNK
     Dates: start: 20120108
  48. DILTIAZEM HCL [Concomitant]
  49. SIMVASTATIN [Concomitant]
  50. VICODIN [Concomitant]
  51. AMBIEN [Concomitant]
  52. FINASTERIDE [Concomitant]
  53. FLEXERIL [Concomitant]

REACTIONS (2)
  - Muscular weakness [Recovered/Resolved with Sequelae]
  - Mental status changes [Recovered/Resolved]
